FAERS Safety Report 5679857-2 (Version None)
Quarter: 2008Q1

REPORT INFORMATION
  Report Type: 
  Country: None (occurrence: None)
  Receive Date: 20080324
  Receipt Date: 20080312
  Transmission Date: 20080703
  Serious: Yes (Death, Disabling)
  Sender: FDA-Public Use
  Company Number: 20070214 /

PATIENT
  Age: 83 Year
  Sex: Male

DRUGS (5)
  1. VENOFER [Suspect]
     Indication: ANAEMIA
     Dosage: INTRAVENOUS
     Route: 042
     Dates: start: 20070709, end: 20070709
  2. AMINESS [Concomitant]
     Indication: RENAL FAILURE CHRONIC
  3. FELODIPINE [Concomitant]
  4. CALCITRIOL [Concomitant]
  5. PREDNISONE [Concomitant]

REACTIONS (7)
  - CARDIAC FAILURE [None]
  - INFUSION SITE DISCOLOURATION [None]
  - INJECTION SITE EXTRAVASATION [None]
  - LYMPHOEDEMA [None]
  - MYOCARDIAL INFARCTION [None]
  - MYOCARDIAL ISCHAEMIA [None]
  - OEDEMA PERIPHERAL [None]
